FAERS Safety Report 5522297-7 (Version None)
Quarter: 2007Q4

REPORT INFORMATION
  Report Type: 
  Country: None (occurrence: None)
  Receive Date: 20071120
  Receipt Date: 20071108
  Transmission Date: 20080405
  Serious: Yes (Hospitalization)
  Sender: FDA-Public Use
  Company Number: US-ELI_LILLY_AND_COMPANY-US200612004358

PATIENT
  Sex: Female

DRUGS (12)
  1. FORTEO [Suspect]
     Indication: OSTEOPOROSIS
     Dosage: 20 UG, EACH MORNING
     Dates: start: 20061001, end: 20060101
  2. FORTEO [Suspect]
     Dosage: 20 UG, EACH MORNING
     Dates: start: 20070101, end: 20070101
  3. FORTEO [Suspect]
     Dosage: 20 UG, EACH MORNING
     Dates: start: 20070101
  4. TUMS [Concomitant]
     Indication: MINERAL SUPPLEMENTATION
     Dosage: UNK, DAILY (1/D)
  5. ZANTAC [Concomitant]
     Indication: INSOMNIA
  6. COUMADIN [Concomitant]
     Dosage: UNK, DAILY (1/D)
  7. COUMADIN [Concomitant]
     Dosage: 3 MG, EACH EVENING AT 9PM
     Dates: start: 20070329, end: 20070424
  8. COUMADIN [Concomitant]
     Dosage: 4 MG, DAILY (1/D) AT 4PM
     Dates: start: 20070425
  9. INFLUENZA VACCINE [Concomitant]
     Indication: IMMUNISATION
     Dates: start: 20061001, end: 20061001
  10. NORVASC [Concomitant]
     Dosage: 2.5 MG, DAILY (1/D)
     Route: 048
  11. BETAPACE [Concomitant]
     Dosage: 40 MG, 2/D
     Dates: end: 20070301
  12. BETAPACE [Concomitant]
     Dosage: 2/D AT 8AM AND 8PM
     Dates: start: 20070329

REACTIONS (8)
  - ALOPECIA [None]
  - CARDIAC FAILURE CONGESTIVE [None]
  - COMPRESSION FRACTURE [None]
  - HEART RATE IRREGULAR [None]
  - INFLUENZA LIKE ILLNESS [None]
  - NAUSEA [None]
  - PNEUMONIA STAPHYLOCOCCAL [None]
  - UPPER LIMB FRACTURE [None]
